FAERS Safety Report 16433262 (Version 1)
Quarter: 2019Q2

REPORT INFORMATION
  Report Type: Spontaneous
  Country: US (occurrence: US)
  Receive Date: 20190614
  Receipt Date: 20190614
  Transmission Date: 20190711
  Serious: No
  Sender: FDA-Public Use
  Company Number: US-JNJFOC-20170503361

PATIENT
  Sex: Male

DRUGS (7)
  1. IMBRUVICA [Suspect]
     Active Substance: IBRUTINIB
     Indication: CHRONIC LYMPHOCYTIC LEUKAEMIA
     Route: 065
     Dates: start: 201704
  2. ALLOPURINOL. [Concomitant]
     Active Substance: ALLOPURINOL
     Indication: LYMPHOCYTOSIS
  3. PREDNISONE. [Concomitant]
     Active Substance: PREDNISONE
  4. PREDNISONE. [Concomitant]
     Active Substance: PREDNISONE
  5. PREDNISONE. [Concomitant]
     Active Substance: PREDNISONE
  6. PREDNISONE. [Concomitant]
     Active Substance: PREDNISONE
  7. GAMMA GLOBULIN [Concomitant]
     Active Substance: IMMUNE GLOBULIN NOS
     Dates: start: 2017

REACTIONS (1)
  - Platelet count decreased [Not Recovered/Not Resolved]

NARRATIVE: CASE EVENT DATE: 201704
